FAERS Safety Report 15441587 (Version 1)
Quarter: 2018Q3

REPORT INFORMATION
  Report Type: Spontaneous
  Country: US (occurrence: US)
  Receive Date: 20180928
  Receipt Date: 20180928
  Transmission Date: 20181010
  Serious: No
  Sender: FDA-Public Use
  Company Number: US-AMGEN-USASP2018108801

PATIENT
  Age: 68 Year
  Sex: Female
  Weight: 89.34 kg

DRUGS (5)
  1. PROLIA [Suspect]
     Active Substance: DENOSUMAB
     Indication: OSTEOPOROSIS
     Dosage: UNK, Q6MO
     Route: 065
     Dates: start: 2015, end: 201805
  2. TRAMADOL. [Concomitant]
     Active Substance: TRAMADOL
     Indication: RHEUMATOID ARTHRITIS
     Dosage: UNK UNK, QD
  3. VITAMIN D [Concomitant]
     Active Substance: CHOLECALCIFEROL
     Indication: OSTEOPOROSIS
     Dosage: 800 IU, UNK
  4. TYLENOL [Concomitant]
     Active Substance: ACETAMINOPHEN
     Indication: RHEUMATOID ARTHRITIS
     Dosage: 1300 UNK, BID
  5. CALCIUM [Concomitant]
     Active Substance: CALCIUM
     Indication: OSTEOPOROSIS
     Dosage: 600 MG, QD

REACTIONS (12)
  - Sleep disorder due to a general medical condition [Unknown]
  - Arthralgia [Recovering/Resolving]
  - Tachycardia [Unknown]
  - Myalgia [Recovering/Resolving]
  - Mobility decreased [Unknown]
  - Herpes zoster [Unknown]
  - Bone pain [Recovering/Resolving]
  - Rash erythematous [Unknown]
  - Visual impairment [Unknown]
  - Dyspnoea [Unknown]
  - Lung disorder [Recovered/Resolved]
  - Musculoskeletal pain [Unknown]

NARRATIVE: CASE EVENT DATE: 20180523
